FAERS Safety Report 24922512 (Version 1)
Quarter: 2025Q1

REPORT INFORMATION
  Report Type: Spontaneous
  Country: US (occurrence: US)
  Receive Date: 20250204
  Receipt Date: 20250204
  Transmission Date: 20250408
  Serious: No
  Sender: BAYER HEALTHCARE LLC
  Company Number: US-BAYER-2025A000134

PATIENT

DRUGS (1)
  1. CLARITIN LIQUI-GELS [Suspect]
     Active Substance: LORATADINE
     Route: 048

REACTIONS (5)
  - Adverse reaction [Unknown]
  - Cough [Unknown]
  - Throat tightness [Unknown]
  - Headache [Unknown]
  - Rash [Unknown]
